FAERS Safety Report 17674633 (Version 2)
Quarter: 2023Q1

REPORT INFORMATION
  Report Type: Spontaneous
  Country: CA (occurrence: CA)
  Receive Date: 20200416
  Receipt Date: 20230207
  Transmission Date: 20230418
  Serious: Yes (Hospitalization, Other)
  Sender: FDA-Public Use
  Company Number: CA-009507513-2004CAN004245

PATIENT
  Age: 75 Year
  Sex: Male
  Weight: 84.2 kg

DRUGS (9)
  1. KEYTRUDA [Suspect]
     Active Substance: PEMBROLIZUMAB
     Indication: Bladder cancer
     Dosage: 200 MILLIGRAM, 1 EVERY 3 WEEKS; DURATION: 21 DAYS; 4 ML, SINGLE USE VIAL
     Route: 042
     Dates: start: 20190610, end: 20190701
  2. LAMOTRIGINE [Concomitant]
     Active Substance: LAMOTRIGINE
     Dosage: 125 MG QAM AND 250 MG QHS- ESTABLISHED TREATMENT
     Route: 065
  3. ACETAMINOPHEN [Concomitant]
     Active Substance: ACETAMINOPHEN
     Indication: Pain
     Dosage: 1000 MILLIGRAM, BID, PRN - ESTABLISHED TREATMENT
     Route: 065
  4. CLOPIDOGREL [Concomitant]
     Active Substance: CLOPIDOGREL BISULFATE
     Dosage: 75 MILLIGRAM, PO, DAILY (QD)  - ESTABLISHED TREATMENT
     Route: 048
  5. BUPROPION [Concomitant]
     Active Substance: BUPROPION
     Dosage: 450 MILLIGRAM, PO, DAILY (QD)  - ESTABLISHED TREATMENT
     Route: 048
  6. LATUDA [Concomitant]
     Active Substance: LURASIDONE HYDROCHLORIDE
     Dosage: 120 MILLIGRAM, PO, QHS - ESTABLISHED TREATMENT.
     Route: 048
  7. HYDROMORPHONE [Concomitant]
     Active Substance: HYDROMORPHONE
     Indication: Pain
     Dosage: 1 MILLIGRAM, DAILY (QD) PRN - ESTABLISHED TREATMENT
     Route: 065
  8. VENLAFAXINE HYDROCHLORIDE [Concomitant]
     Active Substance: VENLAFAXINE HYDROCHLORIDE
     Dosage: 300 MILLIGRAM, PO, DAILY (QD) - ESTABLISHED TREATMENT
     Route: 048
  9. LEVOTHYROXINE SODIUM [Concomitant]
     Active Substance: LEVOTHYROXINE SODIUM
     Dosage: 0.025 MILLIGRAM, PO, DAILY (QD) AFTER SUPPER - ESTABLISHED TREATMENT
     Route: 048

REACTIONS (5)
  - Autoimmune disorder [Not Recovered/Not Resolved]
  - Myositis [Not Recovered/Not Resolved]
  - Atrioventricular block complete [Not Recovered/Not Resolved]
  - Troponin increased [Not Recovered/Not Resolved]
  - Computerised tomogram abnormal [Not Recovered/Not Resolved]

NARRATIVE: CASE EVENT DATE: 20190710
